FAERS Safety Report 5464625-7 (Version None)
Quarter: 2007Q3

REPORT INFORMATION
  Report Type: 
  Country: None (occurrence: None)
  Receive Date: 20070921
  Receipt Date: 20070911
  Transmission Date: 20080115
  Serious: Yes (Other)
  Sender: FDA-Public Use
  Company Number: US-PFIZER INC-2007076552

PATIENT
  Sex: Female
  Weight: 81.818 kg

DRUGS (10)
  1. CHANTIX [Suspect]
     Indication: SMOKING CESSATION THERAPY
  2. MOBIC [Concomitant]
  3. PLAQUENIL [Concomitant]
  4. ASPIRIN [Concomitant]
  5. LIPITOR [Concomitant]
  6. HYDROCHLOROTHIAZIDE [Concomitant]
  7. IMIPRAMINE [Concomitant]
  8. PAXIL CR [Concomitant]
  9. NEXIUM [Concomitant]
  10. AMBIEN [Concomitant]

REACTIONS (6)
  - DYSKINESIA [None]
  - EXPRESSIVE LANGUAGE DISORDER [None]
  - FEELING ABNORMAL [None]
  - MUSCLE SPASMS [None]
  - TREMOR [None]
  - WEIGHT INCREASED [None]
